FAERS Safety Report 5046097-X (Version None)
Quarter: 2006Q3

REPORT INFORMATION
  Report Type: 
  Country: None (occurrence: None)
  Receive Date: 20060710
  Receipt Date: 20060629
  Transmission Date: 20061208
  Serious: Yes (Hospitalization)
  Sender: FDA-Public Use
  Company Number: US-JNJFOC-20060606580

PATIENT
  Sex: Female

DRUGS (12)
  1. REMICADE [Suspect]
     Indication: RHEUMATOID ARTHRITIS
     Route: 042
  2. TOPROL-XL [Concomitant]
  3. SULFASALAZINE [Concomitant]
  4. ZANTAC [Concomitant]
  5. AMITRIPTYLINE HCL [Concomitant]
  6. FOLIC ACID [Concomitant]
  7. DARVOCET-N 100 [Concomitant]
  8. ACTONEL [Concomitant]
  9. MIACALCIN [Concomitant]
  10. MOBIC [Concomitant]
  11. ASPIRIN [Concomitant]
  12. MULTI-VITAMIN [Concomitant]

REACTIONS (1)
  - LUNG NEOPLASM MALIGNANT [None]
